FAERS Safety Report 5317459-8 (Version None)
Quarter: 2007Q2

REPORT INFORMATION
  Report Type: 
  Country: None (occurrence: None)
  Receive Date: 20070507
  Receipt Date: 20070424
  Transmission Date: 20071010
  Serious: Yes (Other)
  Sender: FDA-Public Use
  Company Number: PHEH2007US05657

PATIENT
  Age: 54 Year
  Sex: Female

DRUGS (5)
  1. LAMISIL [Suspect]
     Indication: ONYCHOMYCOSIS
     Dosage: 250 MG, UNK
     Route: 048
     Dates: start: 20070124, end: 20070409
  2. ACTONEL [Concomitant]
     Indication: OSTEOPENIA
  3. ASPIRIN [Concomitant]
     Indication: PROPHYLAXIS
     Dosage: 81 MG, QD
     Route: 048
  4. CALCIUM CHLORIDE [Concomitant]
     Indication: PROPHYLAXIS
     Route: 048
  5. MULTI-VITAMIN [Concomitant]
     Indication: PROPHYLAXIS
     Route: 048

REACTIONS (5)
  - AGEUSIA [None]
  - ANOSMIA [None]
  - DEPRESSION [None]
  - DYSGEUSIA [None]
  - WEIGHT DECREASED [None]
